FAERS Safety Report 6426695-9 (Version None)
Quarter: 2009Q4

REPORT INFORMATION
  Report Type: 
  Country: None (occurrence: None)
  Receive Date: 20091030
  Receipt Date: 20091023
  Transmission Date: 20100525
  Serious: Yes (Death, Life-Threatening)
  Sender: FDA-Public Use
  Company Number: URSO-2009-075 FUP1

PATIENT
  Age: 61 Year
  Sex: Male

DRUGS (9)
  1. URSODIOL [Suspect]
     Indication: LIVER DISORDER
     Dosage: 300MG ORAL ; 600MG ORAL ; 600MG ORAL
     Route: 048
     Dates: start: 20071101, end: 20071114
  2. URSODIOL [Suspect]
     Indication: LIVER DISORDER
     Dosage: 300MG ORAL ; 600MG ORAL ; 600MG ORAL
     Route: 048
     Dates: start: 20071115, end: 20080429
  3. URSODIOL [Suspect]
     Indication: LIVER DISORDER
     Dosage: 300MG ORAL ; 600MG ORAL ; 600MG ORAL
     Route: 048
     Dates: start: 20080604, end: 20080717
  4. RENIVACE [Concomitant]
  5. ADALAT CC [Concomitant]
  6. ALLELOCK [Concomitant]
  7. MUCOSTA [Concomitant]
  8. HIRUDOID [Concomitant]
  9. MYSER [Concomitant]

REACTIONS (17)
  - ACUTE RESPIRATORY FAILURE [None]
  - ADULT T-CELL LYMPHOMA/LEUKAEMIA [None]
  - CHOLELITHIASIS [None]
  - CONSTIPATION [None]
  - CYTOMEGALOVIRUS INFECTION [None]
  - DRUG INEFFECTIVE [None]
  - GAIT DISTURBANCE [None]
  - HERPES DERMATITIS [None]
  - HERPES SIMPLEX [None]
  - HYPERCALCAEMIA [None]
  - HYPOXIA [None]
  - PNEUMONIA VIRAL [None]
  - PRURITUS [None]
  - PYELOCALIECTASIS [None]
  - PYREXIA [None]
  - RENAL CYST [None]
  - SPLENOMEGALY [None]
